FAERS Safety Report 6967191 (Version 5)
Quarter: 2013Q2

REPORT INFORMATION
  Report Type: Spontaneous
  Country: US (occurrence: US)
  Receive Date: 20080717
  Receipt Date: 20130621
  Transmission Date: 20140414
  Serious: Yes (Other)
  Sender: FDA-Public Use
  Company Number: US-BIOGENIDEC-2008BI016936

PATIENT
  Age: 50 Year
  Sex: Female
  Weight: 81 kg

DRUGS (9)
  1. TYSABRI [Suspect]
     Indication: MULTIPLE SCLEROSIS
     Route: 042
     Dates: start: 200502, end: 200502
  2. TYSABRI [Suspect]
     Indication: MULTIPLE SCLEROSIS
     Route: 042
     Dates: start: 20061025
  3. WELLBUTRIN XL [Concomitant]
  4. ADDERALL [Concomitant]
  5. DITROPAN [Concomitant]
  6. KLONOPIN [Concomitant]
  7. SYNTHROID [Concomitant]
  8. HYDROCODONE [Concomitant]
  9. VITAMIN D SUPPLEMENTS [Concomitant]

REACTIONS (6)
  - Dysplastic naevus [Recovered/Resolved]
  - Solar lentigo [Recovered/Resolved]
  - Malignant melanoma [Not Recovered/Not Resolved]
  - Hypoaesthesia [Unknown]
  - Arthritis [Recovered/Resolved]
  - Gait disturbance [Unknown]
